FAERS Safety Report 9420218 (Version 2)
Quarter: 2013Q3

REPORT INFORMATION
  Report Type: Spontaneous
  Country: US (occurrence: US)
  Receive Date: 20130725
  Receipt Date: 20130812
  Transmission Date: 20140515
  Serious: No
  Sender: FDA-Public Use
  Company Number: US-PFIZER INC-2013216780

PATIENT
  Age: 78 Year
  Sex: Male

DRUGS (3)
  1. ALPRAZOLAM [Suspect]
     Indication: ANXIETY
     Dosage: 1 MG, DAILY
  2. ALPRAZOLAM [Suspect]
     Dosage: 0.5 MG, 2X/DAY
     Dates: start: 20130718
  3. ALPRAZOLAM [Suspect]
     Dosage: 0.25 MG, EVERY 6 HOURS

REACTIONS (4)
  - Drug ineffective [Unknown]
  - Insomnia [Unknown]
  - Somnolence [Unknown]
  - Nervousness [Unknown]
